FAERS Safety Report 26190267 (Version 1)
Quarter: 2025Q4

REPORT INFORMATION
  Report Type: Spontaneous
  Country: GB (occurrence: GB)
  Receive Date: 20251223
  Receipt Date: 20251223
  Transmission Date: 20260118
  Serious: Yes (Other)
  Sender: ITALFARMACO
  Company Number: GB-MHRA-MED-202511101638079320-WKVYL

PATIENT
  Age: 13 Year
  Sex: Male

DRUGS (5)
  1. GIVINOSTAT [Suspect]
     Active Substance: GIVINOSTAT
     Indication: Duchenne muscular dystrophy
     Dosage: 31MGS TWICE DAILY (3.5MLS)
     Dates: start: 20250806
  2. DEFLAZACORT [Concomitant]
     Active Substance: DEFLAZACORT
  3. LISINOPRIL [Concomitant]
     Active Substance: LISINOPRIL
  4. LACTULOSE [Concomitant]
     Active Substance: LACTULOSE
  5. VITAMIN D NOS [Concomitant]
     Active Substance: CHOLECALCIFEROL\ERGOCALCIFEROL

REACTIONS (2)
  - Thrombocytopenia [Recovering/Resolving]
  - Diarrhoea [Recovering/Resolving]

NARRATIVE: CASE EVENT DATE: 20250820
